FAERS Safety Report 10020583 (Version 3)
Quarter: 2014Q2

REPORT INFORMATION
  Report Type: Spontaneous
  Country: GB (occurrence: GB)
  Receive Date: 20140319
  Receipt Date: 20140505
  Transmission Date: 20141212
  Serious: Yes (Hospitalization, Other)
  Sender: FDA-Public Use
  Company Number: PHFR2014GB002232

PATIENT
  Age: 74 Year
  Sex: Male

DRUGS (1)
  1. CLOZARIL [Suspect]
     Dosage: UNK
     Route: 048
     Dates: start: 20020228

REACTIONS (5)
  - Fall [Recovered/Resolved]
  - Urinary tract infection [Unknown]
  - Mental impairment [Recovering/Resolving]
  - Lower respiratory tract infection [Recovered/Resolved]
  - Malaise [Unknown]
